FAERS Safety Report 7406814-8 (Version None)
Quarter: 2011Q2

REPORT INFORMATION
  Report Type: 
  Country: None (occurrence: None)
  Receive Date: 20110411
  Receipt Date: 20110328
  Transmission Date: 20111010
  Serious: Yes (Death, Hospitalization)
  Sender: FDA-Public Use
  Company Number: JP-JNJFOC-20110102047

PATIENT
  Age: 48 Year
  Sex: Female
  Weight: 43 kg

DRUGS (16)
  1. REMICADE [Suspect]
     Indication: PSORIATIC ARTHROPATHY
     Route: 042
  2. SELBEX [Concomitant]
     Route: 048
  3. URSO 250 [Concomitant]
     Indication: HEPATITIS C
     Route: 048
  4. URSO 250 [Concomitant]
     Route: 048
  5. DEPAS [Concomitant]
     Route: 048
  6. OLMETEC [Concomitant]
     Indication: HYPERTENSION
     Route: 048
  7. OXAROL [Concomitant]
     Indication: PSORIATIC ARTHROPATHY
     Route: 061
  8. ANTEBATE [Concomitant]
     Indication: PSORIATIC ARTHROPATHY
     Route: 061
  9. URSO 250 [Concomitant]
     Route: 048
  10. REMICADE [Suspect]
     Dosage: 3RD DOSE
     Route: 042
  11. SELBEX [Concomitant]
     Indication: PROPHYLAXIS
     Route: 048
  12. HYDROCORTISONE BUTYRATE [Concomitant]
     Indication: PSORIATIC ARTHROPATHY
     Route: 061
  13. REMICADE [Suspect]
     Route: 042
  14. PREDNISOLONE [Suspect]
     Indication: PROPHYLAXIS
     Route: 048
  15. DEPAS [Concomitant]
     Indication: PROPHYLAXIS
     Route: 048
  16. DERMOVATE [Concomitant]
     Indication: PSORIATIC ARTHROPATHY
     Route: 061

REACTIONS (15)
  - RENAL DISORDER [None]
  - BURSITIS [None]
  - PLATELET COUNT DECREASED [None]
  - LIVER DISORDER [None]
  - HEPATIC CIRRHOSIS [None]
  - MULTI-ORGAN FAILURE [None]
  - ASCITES [None]
  - PNEUMOCYSTIS JIROVECI PNEUMONIA [None]
  - INFECTION [None]
  - HISTIOCYTOSIS HAEMATOPHAGIC [None]
  - HEPATITIS C [None]
  - PYREXIA [None]
  - CELLULITIS [None]
  - DRUG ERUPTION [None]
  - ANAEMIA [None]
